FAERS Safety Report 7002215-5 (Version None)
Quarter: 2010Q3

REPORT INFORMATION
  Report Type: 
  Country: None (occurrence: None)
  Receive Date: 20100920
  Receipt Date: 20100331
  Transmission Date: 20110219
  Serious: Yes (Hospitalization)
  Sender: FDA-Public Use
  Company Number: US-ASTRAZENECA-2009SE22061

PATIENT
  Sex: Female

DRUGS (10)
  1. SEROQUEL [Suspect]
     Indication: DEPRESSION
     Dosage: 50-200 MG HS
     Route: 048
     Dates: start: 20050716
  2. SEROQUEL [Suspect]
     Indication: ANXIETY
     Dosage: 50-200 MG HS
     Route: 048
     Dates: start: 20050716
  3. SEROQUEL [Suspect]
     Indication: SLEEP DISORDER
     Dosage: 50-200 MG HS
     Route: 048
     Dates: start: 20050716
  4. RISPERIDONE [Concomitant]
     Route: 048
     Dates: end: 20050730
  5. RISPERIDONE [Concomitant]
     Dosage: 2 MG QD, 1 MG QD PRN
     Route: 048
     Dates: end: 20050730
  6. PROZAC [Concomitant]
     Route: 048
     Dates: start: 20060717
  7. VISTARIL [Concomitant]
     Indication: INSOMNIA
     Dosage: 25 MG 1-4 PO QHS PRN
     Route: 048
     Dates: start: 20060711, end: 20060717
  8. ASPART INSULIN [Concomitant]
     Dosage: 7 UNIT QAC
     Dates: start: 20080613
  9. MIRTAZAPINE [Concomitant]
     Dates: start: 20080613
  10. PRAZOSIN HCL [Concomitant]
     Dates: start: 20080613

REACTIONS (4)
  - DIABETES MELLITUS INADEQUATE CONTROL [None]
  - DIABETIC KETOACIDOSIS [None]
  - DRUG INEFFECTIVE [None]
  - TYPE 1 DIABETES MELLITUS [None]
